FAERS Safety Report 10339283 (Version 3)
Quarter: 2014Q3

REPORT INFORMATION
  Report Type: Report from Study
  Country: FR (occurrence: FR)
  Receive Date: 20140724
  Receipt Date: 20140801
  Transmission Date: 20150326
  Serious: Yes (Other)
  Sender: FDA-Public Use
  Company Number: FR-VERTEX PHARMACEUTICALS INC-AE-2011-000122

PATIENT
  Age: 49 Year
  Weight: 70 kg

DRUGS (6)
  1. VX-950 (TELAPREVIR) [Suspect]
     Active Substance: TELAPREVIR
     Indication: HEPATIC CIRRHOSIS
     Dosage: 750 MG, TID
     Route: 048
     Dates: start: 20110224, end: 20110519
  2. VX-950 (TELAPREVIR) [Suspect]
     Active Substance: TELAPREVIR
     Indication: HEPATITIS C
  3. COPEGUS [Suspect]
     Active Substance: RIBAVIRIN
     Indication: HEPATIC CIRRHOSIS
     Dosage: 1200 MG, QD
     Route: 048
     Dates: start: 20110224
  4. PEGASYS [Suspect]
     Active Substance: PEGINTERFERON ALFA-2A
     Indication: HEPATITIS C
     Dosage: 135 ?G, UNK
     Route: 058
     Dates: start: 20110525
  5. PEGASYS [Suspect]
     Active Substance: PEGINTERFERON ALFA-2A
     Indication: HEPATIC CIRRHOSIS
     Dosage: 180 ?G, UNK
     Route: 058
     Dates: start: 20110224
  6. COPEGUS [Suspect]
     Active Substance: RIBAVIRIN
     Indication: HEPATITIS C

REACTIONS (4)
  - Depression [Recovered/Resolved]
  - Haemoglobin decreased [Recovered/Resolved]
  - Thrombocytopenia [Not Recovered/Not Resolved]
  - Alcoholism [Unknown]

NARRATIVE: CASE EVENT DATE: 20110309
